FAERS Safety Report 13901061 (Version 1)
Quarter: 2017Q3

REPORT INFORMATION
  Report Type: Spontaneous
  Country: US (occurrence: None)
  Receive Date: 20170818
  Receipt Date: 20170818
  Transmission Date: 20171127
  Serious: Yes (Life-Threatening, Disabling)
  Sender: FDA-Public Use
  Company Number: None

PATIENT
  Age: 52 Year
  Sex: Female

DRUGS (12)
  1. SULFAMETHOXAZOLE/TRIMETHOPRIM [Concomitant]
     Active Substance: SULFAMETHOXAZOLE\TRIMETHOPRIM
  2. IBEPROFEN [Concomitant]
  3. CYMBALTA [Suspect]
     Active Substance: DULOXETINE HYDROCHLORIDE
  4. PREMARIN VAGINAL [Concomitant]
     Active Substance: ESTROGENS, CONJUGATED
  5. OMERPRAZOLE [Concomitant]
     Active Substance: OMEPRAZOLE
  6. B-12 CYANOCOBALAMIN [Concomitant]
     Active Substance: CYANOCOBALAMIN
  7. HYDROCODONE [Suspect]
     Active Substance: HYDROCODONE
     Indication: SURGERY
     Dates: start: 2008, end: 2014
  8. TYLENOL [Concomitant]
     Active Substance: ACETAMINOPHEN
  9. DONEPEZIL. [Concomitant]
     Active Substance: DONEPEZIL
  10. DULOXITINE HCL [Concomitant]
  11. SIMVASTATIN. [Concomitant]
     Active Substance: SIMVASTATIN
  12. AMITRIPTYLINE [Suspect]
     Active Substance: AMITRIPTYLINE

REACTIONS (9)
  - Depression [None]
  - Vision blurred [None]
  - Balance disorder [None]
  - Documented hypersensitivity to administered product [None]
  - Delayed recovery from anaesthesia [None]
  - Post procedural complication [None]
  - Dyspnoea [None]
  - Memory impairment [None]
  - Paraesthesia [None]

NARRATIVE: CASE EVENT DATE: 20140723
